FAERS Safety Report 4702308-9 (Version None)
Quarter: 2005Q2

REPORT INFORMATION
  Report Type: 
  Country: None (occurrence: None)
  Receive Date: 20050628
  Receipt Date: 20050628
  Transmission Date: 20051028
  Serious: Yes (Other)
  Sender: FDA-Public Use
  Company Number: None

PATIENT
  Sex: Female
  Weight: 95.709 kg

DRUGS (2)
  1. TRAMADOL HCL [Suspect]
     Indication: PAIN
     Dates: start: 20050409, end: 20050416
  2. TRAZODONE [Suspect]

REACTIONS (2)
  - DRUG DISPENSING ERROR [None]
  - MEDICATION ERROR [None]
